FAERS Safety Report 8246867-0 (Version None)
Quarter: 2012Q1

REPORT INFORMATION
  Report Type: 
  Country: None (occurrence: None)
  Receive Date: 20120330
  Receipt Date: 20120328
  Transmission Date: 20120608
  Serious: Yes (Death, Other)
  Sender: FDA-Public Use
  Company Number: GB-B.I. PHARMACEUTICALS,INC./RIDGEFIELD-2012-UK-00403UK

PATIENT
  Sex: Male

DRUGS (2)
  1. PRADAXA [Suspect]
  2. ENOXAPARIN [Suspect]
     Indication: THROMBOSIS PROPHYLAXIS

REACTIONS (3)
  - GASTROINTESTINAL HAEMORRHAGE [None]
  - RENAL IMPAIRMENT [None]
  - MYOCARDIAL ISCHAEMIA [None]
